FAERS Safety Report 5081962-9 (Version None)
Quarter: 2006Q3

REPORT INFORMATION
  Report Type: 
  Country: None (occurrence: None)
  Receive Date: 20060811
  Receipt Date: 20060727
  Transmission Date: 20061208
  Serious: Yes (Hospitalization, Disabling)
  Sender: FDA-Public Use
  Company Number: 227256

PATIENT
  Age: 40 Year
  Sex: Female

DRUGS (3)
  1. AVASTIN [Suspect]
     Indication: COLON CANCER
     Dosage: 540 MG, Q3W, INTRAVENOUS
     Route: 042
     Dates: start: 20051114
  2. CAPECITABINE(CAPECITABINE) [Suspect]
     Indication: COLON CANCER
     Dosage: 3600 MG, ORAL
     Route: 048
     Dates: start: 20051114
  3. OXALIPLATIN [Suspect]
     Indication: COLON CANCER
     Dosage: 235 MG, Q3W, INTRAVENOUS
     Route: 042
     Dates: start: 20051114

REACTIONS (3)
  - EXTRAVASATION [None]
  - PYODERMA GANGRENOSUM [None]
  - PYREXIA [None]
